FAERS Safety Report 4604660-1 (Version None)
Quarter: 2005Q1

REPORT INFORMATION
  Report Type: 
  Country: None (occurrence: None)
  Receive Date: 20050116
  Receipt Date: 20050106
  Transmission Date: 20050727
  Serious: No
  Sender: FDA-Public Use
  Company Number: PHEH2005US00636

PATIENT
  Age: 59 Year
  Sex: Female

DRUGS (2)
  1. GLEEVEC [Suspect]
     Indication: THYMIC CANCER METASTATIC
     Dosage: 400 MG, QD, ORAL
     Route: 048
     Dates: start: 20041230
  2. NEURONTIN [Concomitant]

REACTIONS (2)
  - CONDITION AGGRAVATED [None]
  - TRIGEMINAL NEURALGIA [None]
